FAERS Safety Report 7770620-5 (Version None)
Quarter: 2011Q3

REPORT INFORMATION
  Report Type: 
  Country: None (occurrence: None)
  Receive Date: 20110922
  Receipt Date: 20110908
  Transmission Date: 20111222
  Serious: Yes (Hospitalization)
  Sender: FDA-Public Use
  Company Number: PHHY2011DE67398

PATIENT
  Sex: Female
  Weight: 72 kg

DRUGS (6)
  1. RASILEZ [Suspect]
     Indication: HYPERTENSION
     Dosage: 300 MG/DAY
     Route: 048
     Dates: start: 20110601, end: 20110701
  2. TORSEMIDE [Concomitant]
     Dosage: 1 DF, QD
  3. BECLOMETASONE DIPROPIONATE W/FORMOTEROL FUMARATE [Concomitant]
     Dosage: 2X1 INHAL DOS.
  4. INSULIN BASAL [Concomitant]
     Dosage: 10 IU, BID
     Route: 058
  5. CONTRACEPTIVES NOS [Concomitant]
     Dosage: UNK
  6. INSULIN RAPID ^PARANOVA^ [Concomitant]

REACTIONS (3)
  - BLOOD CREATININE INCREASED [None]
  - PROTEINURIA [None]
  - HYPERTENSION [None]
